FAERS Safety Report 10912898 (Version 1)
Quarter: 2015Q1

REPORT INFORMATION
  Report Type: Spontaneous
  Country: ES (occurrence: ES)
  Receive Date: 20150313
  Receipt Date: 20150313
  Transmission Date: 20150721
  Serious: Yes (Hospitalization, Other)
  Sender: FDA-Public Use
  Company Number: ES-ROXANE LABORATORIES, INC.-2015-RO-00432RO

PATIENT
  Age: 82 Year
  Sex: Male

DRUGS (1)
  1. METHOTREXATE [Suspect]
     Active Substance: METHOTREXATE
     Indication: RHEUMATOID ARTHRITIS
     Dosage: 7.5 MG
     Route: 065

REACTIONS (10)
  - Mucosal inflammation [Recovered/Resolved]
  - Atrial fibrillation [Unknown]
  - Pulmonary sepsis [Recovered/Resolved]
  - Pancytopenia [Recovered/Resolved]
  - Incorrect drug administration duration [None]
  - Lung infiltration [Recovered/Resolved]
  - Normochromic normocytic anaemia [Recovered/Resolved]
  - Bone marrow failure [Recovered/Resolved]
  - Accidental overdose [None]
  - Pleural effusion [Recovered/Resolved]
